FAERS Safety Report 12598903 (Version 2)
Quarter: 2016Q3

REPORT INFORMATION
  Report Type: Spontaneous
  Country: US (occurrence: US)
  Receive Date: 20160726
  Receipt Date: 20160901
  Transmission Date: 20161109
  Serious: Yes (Other)
  Sender: FDA-Public Use
  Company Number: US-TEVA-675975USA

PATIENT
  Sex: Female

DRUGS (1)
  1. COPAXONE [Suspect]
     Active Substance: GLATIRAMER ACETATE

REACTIONS (13)
  - Drug ineffective [Unknown]
  - Alopecia [Recovered/Resolved]
  - Decreased appetite [Unknown]
  - Injection site irritation [Recovered/Resolved]
  - Weight increased [Recovered/Resolved]
  - Adverse event [Unknown]
  - Injection site erythema [Recovered/Resolved]
  - Fatigue [Recovered/Resolved]
  - Injection site swelling [Recovered/Resolved]
  - Injection site urticaria [Recovered/Resolved]
  - Multiple sclerosis relapse [Unknown]
  - Abdominal distension [Unknown]
  - Central nervous system lesion [Unknown]
